FAERS Safety Report 9665797 (Version 1)
Quarter: 2013Q4

REPORT INFORMATION
  Report Type: Spontaneous
  Country: BE (occurrence: BE)
  Receive Date: 20131104
  Receipt Date: 20131104
  Transmission Date: 20140711
  Serious: Yes (Hospitalization, Other)
  Sender: FDA-Public Use
  Company Number: PHHY2013BE123655

PATIENT
  Age: 60 Year
  Sex: Male

DRUGS (5)
  1. CLOZAPINE [Suspect]
     Dosage: UNK
  2. CLOZAPINE [Suspect]
     Dosage: UNK
  3. QUETIAPINE [Concomitant]
     Dosage: UNK
  4. VALPROIC ACID [Concomitant]
     Dosage: UNK
  5. LEVODOPA [Concomitant]
     Dosage: UNK

REACTIONS (2)
  - Mania [Recovered/Resolved]
  - Grand mal convulsion [Recovered/Resolved]
